FAERS Safety Report 5033789-1 (Version None)
Quarter: 2006Q2

REPORT INFORMATION
  Report Type: 
  Country: None (occurrence: None)
  Receive Date: 20060518
  Receipt Date: 20050614
  Transmission Date: 20061013
  Serious: Yes (Other)
  Sender: FDA-Public Use
  Company Number: 2005089099

PATIENT
  Age: 21 Year
  Sex: Female
  Weight: 122.4712 kg

DRUGS (1)
  1. DEPO-PROVERA [Suspect]
     Indication: CONTRACEPTION
     Dosage: (1ST INJECTION, EVERY 3 MONTHS),INTRAMUSCULAR
     Route: 030
     Dates: start: 20050125, end: 20050125

REACTIONS (5)
  - BREAST TENDERNESS [None]
  - DIZZINESS [None]
  - METRORRHAGIA [None]
  - NAUSEA [None]
  - WEIGHT DECREASED [None]
